FAERS Safety Report 5311418-7 (Version None)
Quarter: 2007Q2

REPORT INFORMATION
  Report Type: 
  Country: None (occurrence: None)
  Receive Date: 20070426
  Receipt Date: 20070426
  Transmission Date: 20071010
  Serious: Yes (Life-Threatening, Hospitalization)
  Sender: FDA-Public Use
  Company Number: None

PATIENT
  Age: 69 Year
  Sex: Male
  Weight: 95.7 kg

DRUGS (8)
  1. PIPERACILLIN AND TAZOBACTAM [Suspect]
     Indication: LEG AMPUTATION
     Dosage: 2.25GRAM Q 6 HOURS
     Dates: start: 20070110, end: 20070117
  2. PIPERACILLIN AND TAZOBACTAM [Suspect]
     Indication: SEPSIS
     Dosage: 2.25GRAM Q 6 HOURS
     Dates: start: 20070110, end: 20070117
  3. DOPAMINE HCL [Concomitant]
  4. FENTANYL [Concomitant]
  5. INSULIN [Concomitant]
  6. MIDAZOLAM HCL [Concomitant]
  7. VANCOMYCIN [Concomitant]
  8. PANTOPRAZOLE [Concomitant]

REACTIONS (17)
  - ACUTE RESPIRATORY DISTRESS SYNDROME [None]
  - ANAEMIA [None]
  - DISSEMINATED INTRAVASCULAR COAGULATION [None]
  - HAEMODIALYSIS [None]
  - HYPOPERFUSION [None]
  - HYPOTENSION [None]
  - LEG AMPUTATION [None]
  - OLIGURIA [None]
  - PLATELET COUNT INCREASED [None]
  - PNEUMONIA [None]
  - POST PROCEDURAL COMPLICATION [None]
  - PYREXIA [None]
  - RENAL IMPAIRMENT [None]
  - RENAL INJURY [None]
  - RENAL TUBULAR NECROSIS [None]
  - SEPSIS [None]
  - THROMBOTIC THROMBOCYTOPENIC PURPURA [None]
